FAERS Safety Report 10464051 (Version 4)
Quarter: 2014Q4

REPORT INFORMATION
  Report Type: Report from Study
  Country: DE (occurrence: DE)
  Receive Date: 20140919
  Receipt Date: 20141114
  Transmission Date: 20150528
  Serious: Yes (Death)
  Sender: FDA-Public Use
  Company Number: PHHY2014DE120948

PATIENT
  Sex: Female
  Weight: 39 kg

DRUGS (7)
  1. SALBUTAMOL STADA [Concomitant]
     Indication: CHRONIC OBSTRUCTIVE PULMONARY DISEASE
     Dosage: 0.1MG/PUFF
     Route: 055
     Dates: start: 20140717
  2. ULTIBRO BREEZHALER [Suspect]
     Active Substance: GLYCOPYRRONIUM\INDACATEROL
     Indication: CHRONIC OBSTRUCTIVE PULMONARY DISEASE
     Dosage: 1 DF, QD
     Route: 055
     Dates: start: 20140113
  3. BERODUAL [Concomitant]
     Active Substance: FENOTEROL HYDROBROMIDE\IPRATROPIUM BROMIDE
     Indication: CHRONIC OBSTRUCTIVE PULMONARY DISEASE
     Route: 065
     Dates: start: 20140113
  4. PREDNISOLON GALEN [Concomitant]
     Indication: CHRONIC OBSTRUCTIVE PULMONARY DISEASE
     Dosage: 10 MG, PER DAY
     Route: 065
     Dates: start: 20140107
  5. ATOSIL [Concomitant]
     Active Substance: PROMETHAZINE HYDROCHLORIDE
     Indication: RESTLESSNESS
     Route: 065
     Dates: start: 20140226
  6. NO TREATMENT RECEIVED [Suspect]
     Active Substance: UNSPECIFIED INGREDIENT
     Indication: PRODUCT USED FOR UNKNOWN INDICATION
     Route: 065
  7. TORASEMID AL [Concomitant]
     Indication: CARDIAC FAILURE
     Dosage: 10 MG, PER DAY
     Route: 065
     Dates: start: 20140401

REACTIONS (3)
  - Cachexia [Fatal]
  - Respiratory failure [Fatal]
  - Muscular weakness [Fatal]

NARRATIVE: CASE EVENT DATE: 2014
